FAERS Safety Report 4483425-8 (Version None)
Quarter: 2004Q4

REPORT INFORMATION
  Report Type: 
  Country: None (occurrence: None)
  Receive Date: 20041020
  Receipt Date: 20040930
  Transmission Date: 20050328
  Serious: Yes (Hospitalization)
  Sender: FDA-Public Use
  Company Number: USA040979808

PATIENT
  Sex: Female

DRUGS (2)
  1. ALIMTA [Suspect]
     Indication: MESOTHELIOMA
     Dosage: 500 MG/M2/1 OTHER
  2. CISPLATIN [Concomitant]

REACTIONS (4)
  - CELLULITIS [None]
  - HAEMATURIA [None]
  - PAIN [None]
  - PANCYTOPENIA [None]
